FAERS Safety Report 5186804-9 (Version None)
Quarter: 2006Q4

REPORT INFORMATION
  Report Type: 
  Country: None (occurrence: None)
  Receive Date: 20061220
  Receipt Date: 20061030
  Transmission Date: 20070319
  Serious: No
  Sender: FDA-Public Use
  Company Number: US-AMGEN-KDL198812

PATIENT
  Sex: Male

DRUGS (1)
  1. ENBREL [Suspect]
     Indication: PSORIASIS
     Route: 058
     Dates: start: 20061002

REACTIONS (6)
  - DIZZINESS [None]
  - DYSARTHRIA [None]
  - ERYTHEMA [None]
  - FATIGUE [None]
  - HEADACHE [None]
  - INJECTION SITE REACTION [None]
